FAERS Safety Report 8768688 (Version 1)
Quarter: 2012Q4

REPORT INFORMATION
  Report Type: 
  Country: SE (occurrence: SE)
  Receive Date: 20120906
  Receipt Date: 20120906
  Transmission Date: 20130627
  Serious: Yes (Hospitalization)
  Sender: FDA-Public Use
  Company Number: SE-UCBSA-064831

PATIENT
  Sex: Female

DRUGS (4)
  1. CIMZIA [Suspect]
     Dates: start: 2011
  2. ORUDIS RETARD [Concomitant]
  3. LANZO [Concomitant]
  4. VENTOLINE VB [Concomitant]

REACTIONS (2)
  - Dyspnoea [Unknown]
  - Chest discomfort [Unknown]
